FAERS Safety Report 8259919-6 (Version None)
Quarter: 2012Q2

REPORT INFORMATION
  Report Type: 
  Country: None (occurrence: None)
  Receive Date: 20120402
  Receipt Date: 20120322
  Transmission Date: 20120825
  Serious: Yes (Other)
  Sender: FDA-Public Use
  Company Number: PI-06940

PATIENT
  Sex: Female

DRUGS (1)
  1. CHLORAPREP [Suspect]
     Indication: PREOPERATIVE CARE
     Dosage: 0.67ML, ONCE,TOPICAL
     Route: 061
     Dates: start: 20120227

REACTIONS (5)
  - FOREIGN BODY [None]
  - ACCIDENT AT WORK [None]
  - DEVICE BREAKAGE [None]
  - LIMB INJURY [None]
  - PAIN IN EXTREMITY [None]
